FAERS Safety Report 5101888-1 (Version None)
Quarter: 2006Q3

REPORT INFORMATION
  Report Type: 
  Country: None (occurrence: None)
  Receive Date: 20060907
  Receipt Date: 20060816
  Transmission Date: 20061208
  Serious: Yes (Hospitalization)
  Sender: FDA-Public Use
  Company Number: US200608003678

PATIENT
  Age: 83 Year
  Sex: Female

DRUGS (2)
  1. FORTEO [Suspect]
     Indication: OSTEOPOROSIS
     Dates: start: 20050201
  2. FORTEO [Concomitant]

REACTIONS (4)
  - BLOOD COUNT ABNORMAL [None]
  - BLOOD IRON DECREASED [None]
  - BLOOD SODIUM DECREASED [None]
  - PHARMACEUTICAL PRODUCT COMPLAINT [None]
